FAERS Safety Report 4682335-0 (Version None)
Quarter: 2005Q2

REPORT INFORMATION
  Report Type: 
  Country: None (occurrence: None)
  Receive Date: 20050602
  Receipt Date: 20050602
  Transmission Date: 20051028
  Serious: Yes (Hospitalization)
  Sender: FDA-Public Use
  Company Number: None

PATIENT
  Age: 49 Year
  Sex: Female
  Weight: 96 kg

DRUGS (7)
  1. RITUXIMAB [Suspect]
     Indication: GRAFT VERSUS HOST DISEASE
     Dosage: 375 MG/M2, 1/WEEK X4 IV
     Route: 042
     Dates: start: 20050119, end: 20050209
  2. BACTRIM [Concomitant]
  3. PROTONIX [Concomitant]
  4. RAPAMUNE [Concomitant]
  5. CELLCEPT [Concomitant]
  6. PREDNISONE TAB [Concomitant]
  7. ACYCLOVIR [Concomitant]

REACTIONS (6)
  - ATELECTASIS [None]
  - DYSPNOEA EXERTIONAL [None]
  - INFECTION [None]
  - OXYGEN SATURATION ABNORMAL [None]
  - PLEURITIC PAIN [None]
  - VIRAL UPPER RESPIRATORY TRACT INFECTION [None]
